FAERS Safety Report 26053609 (Version 3)
Quarter: 2025Q4

REPORT INFORMATION
  Report Type: Spontaneous
  Country: EU (occurrence: EU)
  Receive Date: 20251117
  Receipt Date: 20251201
  Transmission Date: 20260118
  Serious: Yes (Other)
  Sender: ASCEND THERAPEUTICS US, LLC
  Company Number: EU-Ascend Therapeutics US, LLC-2188686

PATIENT
  Age: 58 Year
  Sex: Female

DRUGS (2)
  1. ESTROGEL [Suspect]
     Active Substance: ESTRADIOL
     Indication: Hormone replacement therapy
     Dates: start: 202212, end: 202508
  2. ESTRADIOL [Suspect]
     Active Substance: ESTRADIOL
     Dates: start: 202212, end: 202508

REACTIONS (3)
  - Autoimmune pancreatitis [Recovering/Resolving]
  - Liver function test abnormal [Recovered/Resolved]
  - Biliary obstruction [Unknown]

NARRATIVE: CASE EVENT DATE: 20250801
